FAERS Safety Report 16059469 (Version 3)
Quarter: 2019Q3

REPORT INFORMATION
  Report Type: Report from Study
  Country: US (occurrence: US)
  Receive Date: 20190311
  Receipt Date: 20190722
  Transmission Date: 20191004
  Serious: Yes (Hospitalization)
  Sender: FDA-Public Use
  Company Number: US-ACTELION-A-NJ2018-169362

PATIENT
  Age: 55 Year
  Sex: Female

DRUGS (24)
  1. LORATADINE. [Concomitant]
     Active Substance: LORATADINE
     Dosage: 10 MG, QD
  2. PEPCID [Concomitant]
     Active Substance: FAMOTIDINE
     Dosage: 40 MG, QD
  3. LYSINE [Concomitant]
     Active Substance: LYSINE
     Dosage: 500 MG
     Dates: start: 20161227
  4. BYSTOLIC [Concomitant]
     Active Substance: NEBIVOLOL HYDROCHLORIDE
  5. CITRACAL + D [Concomitant]
     Active Substance: CALCIUM CITRATE\VITAMIN D
     Dosage: 200-250 UNK
     Dates: start: 20161227
  6. LACTOSE FAST ACTING RELIEF [Concomitant]
     Dosage: 9000 UNIT
     Dates: start: 20160720
  7. SERTRALINE [Concomitant]
     Active Substance: SERTRALINE HYDROCHLORIDE
     Dosage: 25 MG
  8. PRAVASTATIN. [Concomitant]
     Active Substance: PRAVASTATIN
  9. SYMBICORT [Concomitant]
     Active Substance: BUDESONIDE\FORMOTEROL FUMARATE DIHYDRATE
     Dosage: 160 - 4.5
     Dates: start: 20160616
  10. MECLIZINE [Concomitant]
     Active Substance: MECLIZINE HYDROCHLORIDE
     Dosage: 12.5 MG, TID
  11. TRACLEER [Suspect]
     Active Substance: BOSENTAN
     Dosage: 125 MG, BID
     Route: 048
     Dates: start: 201907
  12. WARFARIN [Concomitant]
     Active Substance: WARFARIN
     Dosage: 2 MG
     Dates: start: 20160111
  13. AMIODARONE [Concomitant]
     Active Substance: AMIODARONE
  14. METOPROLOL. [Concomitant]
     Active Substance: METOPROLOL
     Dosage: 75 MG
     Dates: start: 20181119
  15. ATORVASTIN [Concomitant]
     Active Substance: ATORVASTATIN
     Dosage: 20 MG, QD
  16. LIPITOR [Concomitant]
     Active Substance: ATORVASTATIN CALCIUM
     Dosage: 20 MG
     Dates: start: 20180315
  17. PRILOSEC [Concomitant]
     Active Substance: OMEPRAZOLE MAGNESIUM
     Dosage: 20 MG
     Dates: start: 20160111
  18. VITAMIN D [Concomitant]
     Active Substance: VITAMIN D NOS
  19. TRACLEER [Suspect]
     Active Substance: BOSENTAN
     Indication: PULMONARY ARTERIAL HYPERTENSION
     Dosage: 125 MG, BID
     Route: 048
     Dates: start: 20140414, end: 201907
  20. ASPIRIN. [Concomitant]
     Active Substance: ASPIRIN
     Dosage: 81 MG
     Dates: start: 20160111
  21. LASIX [Concomitant]
     Active Substance: FUROSEMIDE
     Dosage: 40 MG
     Dates: start: 20160516
  22. VERAPAMIL [Concomitant]
     Active Substance: VERAPAMIL HYDROCHLORIDE
  23. FOLIC ACID. [Concomitant]
     Active Substance: FOLIC ACID
     Dosage: 1 MG
     Dates: start: 20180315
  24. LEVOTHYROXINE. [Concomitant]
     Active Substance: LEVOTHYROXINE
     Dosage: 50 MCG

REACTIONS (7)
  - Headache [Not Recovered/Not Resolved]
  - Transient ischaemic attack [Recovered/Resolved]
  - Dyspnoea [Unknown]
  - Chest pain [Unknown]
  - Product dose omission [Recovered/Resolved]
  - Visual impairment [Not Recovered/Not Resolved]
  - Dizziness [Not Recovered/Not Resolved]

NARRATIVE: CASE EVENT DATE: 20190204
